FAERS Safety Report 13035323 (Version 1)
Quarter: 2016Q4

REPORT INFORMATION
  Report Type: Spontaneous
  Country: FR (occurrence: FR)
  Receive Date: 20161216
  Receipt Date: 20161216
  Transmission Date: 20170207
  Serious: Yes (Other)
  Sender: FDA-Public Use
  Company Number: FR-SA-2016SA224527

PATIENT
  Age: 86 Year
  Sex: Male

DRUGS (11)
  1. CORDARONE [Concomitant]
     Active Substance: AMIODARONE HYDROCHLORIDE
     Route: 048
  2. TAZOCILLINE [Concomitant]
     Active Substance: PIPERACILLIN SODIUM\TAZOBACTAM SODIUM
     Dates: start: 201603
  3. CUBICIN [Concomitant]
     Active Substance: DAPTOMYCIN
     Indication: ENDOCARDITIS STAPHYLOCOCCAL
     Route: 042
     Dates: start: 20160331, end: 20160412
  4. PREVISCAN [Concomitant]
     Active Substance: FLUINDIONE
  5. XATRAL LP [Concomitant]
     Active Substance: ALFUZOSIN
     Route: 048
  6. AMOXICILLINE [Suspect]
     Active Substance: AMOXICILLIN
     Indication: ENDOCARDITIS STAPHYLOCOCCAL
     Route: 042
     Dates: start: 20160331, end: 20160415
  7. GENTAMICIN. [Concomitant]
     Active Substance: GENTAMICIN
     Dates: start: 20160325
  8. RIFADINE [Suspect]
     Active Substance: RIFAMPIN
     Indication: ENDOCARDITIS STAPHYLOCOCCAL
     Route: 042
     Dates: start: 20160329, end: 20160418
  9. CEFAZOLINE [Concomitant]
     Active Substance: CEFAZOLIN SODIUM
     Dates: start: 20160325
  10. CEFAZOLINE [Concomitant]
     Active Substance: CEFAZOLIN SODIUM
     Dates: start: 20160329
  11. VANCOMYCINE [Concomitant]
     Active Substance: VANCOMYCIN
     Dates: start: 201603

REACTIONS (1)
  - Encephalopathy [Recovered/Resolved]

NARRATIVE: CASE EVENT DATE: 20160401
